FAERS Safety Report 4427706-2 (Version None)
Quarter: 2004Q3

REPORT INFORMATION
  Report Type: 
  Country: None (occurrence: None)
  Receive Date: 20040817
  Receipt Date: 20040802
  Transmission Date: 20050211
  Serious: Yes (Hospitalization)
  Sender: FDA-Public Use
  Company Number: ES-ROCHE-376367

PATIENT
  Age: 68 Year
  Sex: Male
  Weight: 80 kg

DRUGS (11)
  1. DACLIZUMAB [Suspect]
     Route: 042
     Dates: start: 20031111, end: 20031111
  2. DACLIZUMAB [Suspect]
     Route: 042
     Dates: start: 20031125, end: 20040108
  3. MYCOPHENOLATE MOFETIL [Suspect]
     Route: 048
     Dates: start: 20031111
  4. SIROLIMUS [Suspect]
     Route: 048
     Dates: start: 20031111, end: 20040126
  5. PREDNISONE [Suspect]
     Route: 048
     Dates: start: 20031111
  6. OMEPRAZOLE [Concomitant]
     Route: 048
     Dates: start: 20031111
  7. 1ALPHA,25-DIHYDROXYVITAMIN D3 [Concomitant]
     Route: 048
     Dates: start: 20031118
  8. COTRIMOXAZOL [Concomitant]
     Route: 048
     Dates: start: 20031113
  9. AMLODIPINO [Concomitant]
     Route: 048
     Dates: start: 20031116
  10. CARVEDILOL [Concomitant]
     Route: 048
     Dates: start: 20031125
  11. SULFATO FERROSO [Concomitant]
     Route: 048
     Dates: start: 20031121, end: 20040115

REACTIONS (1)
  - CYTOMEGALOVIRUS INFECTION [None]
